FAERS Safety Report 5105943-1 (Version None)
Quarter: 2006Q3

REPORT INFORMATION
  Report Type: 
  Country: None (occurrence: None)
  Receive Date: 20060912
  Receipt Date: 20060828
  Transmission Date: 20061208
  Serious: Yes (Other)
  Sender: FDA-Public Use
  Company Number: DSA_81677_2006

PATIENT
  Age: 54 Year
  Sex: Male
  Weight: 113.3993 kg

DRUGS (11)
  1. XYREM [Suspect]
     Indication: INSOMNIA
     Dosage: 3 G TWICE NIGHTLY PO
     Route: 048
     Dates: start: 20060823, end: 20060823
  2. XYREM [Suspect]
     Indication: INSOMNIA
     Dosage: 4.5 G TWICE NIGHTLY PO
     Route: 048
     Dates: start: 20060824, end: 20060826
  3. XYREM [Suspect]
     Indication: INSOMNIA
     Dosage: VAR TWICE NIGHTLY PO
     Route: 048
     Dates: start: 20060827, end: 20060827
  4. XYREM [Suspect]
     Indication: INSOMNIA
     Dosage: 6 G 1XNIGHT PO
     Route: 048
     Dates: start: 20060828
  5. NORVASC [Concomitant]
  6. ENALAPRIL [Concomitant]
  7. SYNTHROID [Concomitant]
  8. EFFEXOR [Concomitant]
  9. TIZANIDINE HCL [Concomitant]
  10. GABITRIL [Concomitant]
  11. LAMICTAL [Concomitant]

REACTIONS (4)
  - CONVULSION [None]
  - HYPERHIDROSIS [None]
  - INSOMNIA [None]
  - VOMITING [None]
